FAERS Safety Report 18935697 (Version 1)
Quarter: 2021Q1

REPORT INFORMATION
  Report Type: Spontaneous
  Country: US (occurrence: US)
  Receive Date: 20210224
  Receipt Date: 20210224
  Transmission Date: 20210420
  Serious: No
  Sender: FDA-Public Use
  Company Number: US-TERSERA THERAPEUTICS LLC-2020TRS001594

PATIENT

DRUGS (4)
  1. PRIALT [Suspect]
     Active Substance: ZICONOTIDE ACETATE
     Indication: PRODUCT USED FOR UNKNOWN INDICATION
     Dosage: 1.8 MCG, QD
     Route: 037
  2. BACLOFEN. [Suspect]
     Active Substance: BACLOFEN
     Indication: PRODUCT USED FOR UNKNOWN INDICATION
     Dosage: 52.75 MCG, QD (2.20 MCG/HR)
     Route: 037
  3. PRIALT [Suspect]
     Active Substance: ZICONOTIDE ACETATE
     Dosage: 2.398 MCG, QD (0.100 MCG/HR)
     Route: 037
  4. BUPIVACAINE. [Suspect]
     Active Substance: BUPIVACAINE
     Indication: PRODUCT USED FOR UNKNOWN INDICATION
     Dosage: 1.439 MG, QD (0.060 MG/HR)
     Route: 037

REACTIONS (2)
  - Off label use [Unknown]
  - Somnolence [Unknown]
